FAERS Safety Report 24887455 (Version 1)
Quarter: 2025Q1

REPORT INFORMATION
  Report Type: Report from Study
  Country: CH (occurrence: CH)
  Receive Date: 20250127
  Receipt Date: 20250127
  Transmission Date: 20250409
  Serious: Yes (Death, Other)
  Sender: CSL BEHRING
  Company Number: CH-BEH-2024168598

PATIENT
  Sex: Female

DRUGS (1)
  1. HIZENTRA [Suspect]
     Active Substance: HUMAN IMMUNOGLOBULIN G
     Indication: Immunodeficiency
     Dosage: 10 G, QW
     Route: 058
     Dates: start: 20191007

REACTIONS (2)
  - Death [Fatal]
  - Metastases to liver [Not Recovered/Not Resolved]

NARRATIVE: CASE EVENT DATE: 20240115
